FAERS Safety Report 10370473 (Version 1)
Quarter: 2014Q3

REPORT INFORMATION
  Report Type: Spontaneous
  Country: US (occurrence: None)
  Receive Date: 20140807
  Receipt Date: 20140807
  Transmission Date: 20150326
  Serious: Yes (Other)
  Sender: FDA-Public Use
  Company Number: None

PATIENT
  Age: 47 Year
  Sex: Female

DRUGS (6)
  1. AUBAGIO [Suspect]
     Active Substance: TERIFLUNOMIDE
     Indication: MULTIPLE SCLEROSIS
     Route: 048
     Dates: start: 201404
  2. TOPIRAMATE. [Concomitant]
     Active Substance: TOPIRAMATE
  3. ACYCLOVIR. [Concomitant]
     Active Substance: ACYCLOVIR
  4. GABAPENTIN. [Concomitant]
     Active Substance: GABAPENTIN
  5. SUMATRIPTAN [Concomitant]
     Active Substance: SUMATRIPTAN
  6. NORETHINDRONE/ETHINYL ESTRADIOL/IRON [Concomitant]

REACTIONS (1)
  - Alopecia [None]
